FAERS Safety Report 8102142-6 (Version None)
Quarter: 2012Q1

REPORT INFORMATION
  Report Type: 
  Country: None (occurrence: None)
  Receive Date: 20120201
  Receipt Date: 20120121
  Transmission Date: 20120608
  Serious: Yes (Hospitalization)
  Sender: FDA-Public Use
  Company Number: US-PAR PHARMACEUTICAL, INC-2012SCPR003933

PATIENT

DRUGS (4)
  1. IBUPROFEN [Suspect]
     Indication: DECREASED APPETITE
  2. IBUPROFEN [Suspect]
     Indication: CHILLS
  3. IBUPROFEN [Suspect]
     Indication: ABDOMINAL PAIN
  4. IBUPROFEN [Suspect]
     Indication: PYREXIA
     Dosage: UNK, UNKNOWN
     Route: 065

REACTIONS (3)
  - GASTRITIS [None]
  - PORTAL VEIN PHLEBITIS [None]
  - EROSIVE OESOPHAGITIS [None]
